FAERS Safety Report 10250145 (Version 1)
Quarter: 2014Q2

REPORT INFORMATION
  Report Type: Spontaneous
  Country: US (occurrence: US)
  Receive Date: 20140620
  Receipt Date: 20140620
  Transmission Date: 20141212
  Serious: Yes (Hospitalization)
  Sender: FDA-Public Use
  Company Number: US-BRISTOL-MYERS SQUIBB COMPANY-20691804

PATIENT
  Age: 84 Year
  Sex: Female
  Weight: 68.03 kg

DRUGS (2)
  1. ELIQUIS [Suspect]
  2. IBUPROFEN [Concomitant]

REACTIONS (1)
  - Intraventricular haemorrhage [Unknown]
